FAERS Safety Report 5752950-1 (Version None)
Quarter: 2008Q2

REPORT INFORMATION
  Report Type: 
  Country: None (occurrence: None)
  Receive Date: 20080527
  Receipt Date: 20080507
  Transmission Date: 20081010
  Serious: Yes (Hospitalization, Other)
  Sender: FDA-Public Use
  Company Number: MEDI-0005164

PATIENT
  Age: 6 Week
  Sex: Male
  Weight: 5 kg

DRUGS (2)
  1. SYNAGIS [Suspect]
     Indication: ANTIVIRAL PROPHYLAXIS
     Dosage: INTRAMUSCULAR
     Route: 030
     Dates: start: 20061030, end: 20061030
  2. INFLUENZA VIRUS (INFLUENZA VIRUS VACCINE POLYVALENT) [Suspect]
     Indication: INFLUENZA IMMUNISATION
     Dosage: INTRAMUSCULAR
     Route: 030
     Dates: start: 20061030, end: 20061030

REACTIONS (4)
  - FEEDING DISORDER NEONATAL [None]
  - FEVER NEONATAL [None]
  - IRRITABILITY [None]
  - SOMNOLENCE NEONATAL [None]
